FAERS Safety Report 9001119 (Version 1)
Quarter: 2013Q1

REPORT INFORMATION
  Report Type: Spontaneous
  Country: US (occurrence: None)
  Receive Date: 20130102
  Receipt Date: 20130102
  Transmission Date: 20140127
  Serious: Yes (Death)
  Sender: FDA-Public Use
  Company Number: None

PATIENT
  Age: 86 Year
  Sex: Male
  Weight: 53.5 kg

DRUGS (2)
  1. DABIGATRAN [Suspect]
     Indication: ATRIAL FIBRILLATION
     Route: 048
     Dates: start: 20120526, end: 20120924
  2. DEXTROSE\HEPARIN [Suspect]
     Dosage: 650 UNITS PER HOUR IV
     Route: 042
     Dates: start: 20120925, end: 20120926

REACTIONS (8)
  - Haematuria [None]
  - Renal failure [None]
  - Catheter site haemorrhage [None]
  - Hyperhidrosis [None]
  - Haematemesis [None]
  - Abdominal distension [None]
  - Abdominal rigidity [None]
  - Cardio-respiratory arrest [None]
